FAERS Safety Report 25803298 (Version 2)
Quarter: 2025Q4

REPORT INFORMATION
  Report Type: Spontaneous
  Country: EU (occurrence: EU)
  Receive Date: 20250915
  Receipt Date: 20251105
  Transmission Date: 20260118
  Serious: Yes (Hospitalization, Other)
  Sender: VERTEX
  Company Number: EU-VERTEX PHARMACEUTICALS-2025-015032

PATIENT
  Age: 21 Year
  Sex: Male
  Weight: 76 kg

DRUGS (5)
  1. ELEXACAFTOR\IVACAFTOR\TEZACAFTOR [Suspect]
     Active Substance: ELEXACAFTOR\IVACAFTOR\TEZACAFTOR
     Indication: Cystic fibrosis
     Dosage: 75 MG IVA/ 50 MG TEZA/ 100 MG ELEXA
     Route: 048
  2. KALYDECO [Suspect]
     Active Substance: IVACAFTOR
     Indication: Cystic fibrosis
     Dosage: 150 MILLIGRAM, QD
     Route: 048
  3. ESCITALOPRAM [Suspect]
     Active Substance: ESCITALOPRAM OXALATE
     Indication: Depression
     Dosage: 10 MG 0.5-0-0DAILY DOSE: 5 MG EVERY 1 DAY
     Route: 048
  4. URSODIOL [Concomitant]
     Active Substance: URSODIOL
     Indication: Cystic fibrosis
     Dosage: 250 MG 2-0-2DAILY DOSE: 1000 MG EVERY 1 DAY
     Route: 048
  5. Movicol junior neutral [Concomitant]
     Dosage: 1 TAB PER DAY
     Route: 048

REACTIONS (2)
  - Generalised tonic-clonic seizure [Recovered/Resolved]
  - Blood creatine phosphokinase increased [Recovering/Resolving]

NARRATIVE: CASE EVENT DATE: 20250903
